FAERS Safety Report 5165560-4 (Version None)
Quarter: 2006Q4

REPORT INFORMATION
  Report Type: 
  Country: None (occurrence: None)
  Receive Date: 20061206
  Receipt Date: 20061201
  Transmission Date: 20070319
  Serious: Yes (Other)
  Sender: FDA-Public Use
  Company Number: US-GLAXOSMITHKLINE-A0629934A

PATIENT
  Age: 84 Year
  Sex: Male

DRUGS (3)
  1. ADVAIR DISKUS 100/50 [Suspect]
     Indication: CHRONIC OBSTRUCTIVE PULMONARY DISEASE
     Dosage: 2PUFF TWICE PER DAY
     Route: 055
     Dates: start: 20050101
  2. SPIRIVA [Concomitant]
  3. PREVACID [Concomitant]

REACTIONS (6)
  - APHASIA [None]
  - DYSPNOEA [None]
  - FUNGAL INFECTION [None]
  - ILL-DEFINED DISORDER [None]
  - OVERDOSE [None]
  - PRODUCTIVE COUGH [None]
